FAERS Safety Report 19891515 (Version 1)
Quarter: 2021Q3

REPORT INFORMATION
  Report Type: Report from Study
  Country: BR (occurrence: BR)
  Receive Date: 20210927
  Receipt Date: 20210927
  Transmission Date: 20211014
  Serious: Yes (Other)
  Sender: FDA-Public Use
  Company Number: NVSC2021BR218319

PATIENT
  Sex: Female

DRUGS (3)
  1. ZOMETA [Suspect]
     Active Substance: ZOLEDRONIC ACID
     Indication: BONE DISORDER
     Dosage: UNK (EVERY OTHER MONTH)
     Route: 065
  2. KISQALI [Suspect]
     Active Substance: RIBOCICLIB
     Indication: BREAST CANCER METASTATIC
     Dosage: 600 MG (FOR 21 DAYS WITH A 7?DAY BREAK, BEGINNING OF 2021)
     Route: 065
     Dates: start: 2021
  3. FULVESTRANT. [Suspect]
     Active Substance: FULVESTRANT
     Indication: PRODUCT USED FOR UNKNOWN INDICATION
     Dosage: UNK, QMO (2 INJECTION, BEGINNING OF 2021)
     Route: 065
     Dates: start: 2021

REACTIONS (4)
  - Breast cancer recurrent [Unknown]
  - Malignant neoplasm progression [Unknown]
  - Emotional disorder [Unknown]
  - Breast cancer metastatic [Unknown]
